FAERS Safety Report 6103220-3 (Version None)
Quarter: 2009Q1

REPORT INFORMATION
  Report Type: 
  Country: None (occurrence: None)
  Receive Date: 20090305
  Receipt Date: 20090303
  Transmission Date: 20090719
  Serious: Yes (Disabling)
  Sender: FDA-Public Use
  Company Number: DK-WYE-G03250709

PATIENT
  Sex: Male

DRUGS (2)
  1. EFFEXOR [Suspect]
     Indication: DEPRESSION
     Route: 048
     Dates: start: 20000620
  2. OMNIC [Concomitant]
     Indication: PROSTATIC DISORDER
     Route: 048
     Dates: start: 20010129

REACTIONS (1)
  - PARKINSONISM [None]
